FAERS Safety Report 7864411-4 (Version None)
Quarter: 2011Q4

REPORT INFORMATION
  Report Type: 
  Country: None (occurrence: None)
  Receive Date: 20111028
  Receipt Date: 20111019
  Transmission Date: 20120403
  Serious: Yes (Hospitalization)
  Sender: FDA-Public Use
  Company Number: PHHY2010US90695

PATIENT
  Sex: Female
  Weight: 79.365 kg

DRUGS (2)
  1. EXJADE [Suspect]
     Indication: IRON OVERLOAD
  2. EXJADE [Suspect]
     Indication: SICKLE CELL ANAEMIA
     Dosage: 3500 MG, DAILY
     Route: 048
     Dates: start: 20060613

REACTIONS (2)
  - URINARY TRACT INFECTION [None]
  - SICKLE CELL ANAEMIA WITH CRISIS [None]
